FAERS Safety Report 15933029 (Version 3)
Quarter: 2025Q1

REPORT INFORMATION
  Report Type: Spontaneous
  Country: US (occurrence: US)
  Receive Date: 20190207
  Receipt Date: 20250210
  Transmission Date: 20250409
  Serious: No
  Sender: KYOWA
  Company Number: US-KYOWAKIRIN-2018BKK009336

PATIENT

DRUGS (2)
  1. CRYSVITA [Suspect]
     Active Substance: BUROSUMAB-TWZA
     Indication: Hereditary hypophosphataemic rickets
     Route: 065
  2. CRYSVITA [Suspect]
     Active Substance: BUROSUMAB-TWZA
     Indication: Hereditary hypophosphataemic rickets
     Dosage: 40 MG, 1X/4 WEEKS
     Route: 058
     Dates: start: 202307

REACTIONS (2)
  - Restless legs syndrome [Unknown]
  - Product dose omission issue [Unknown]
